FAERS Safety Report 5010857-1 (Version None)
Quarter: 2006Q2

REPORT INFORMATION
  Report Type: 
  Country: None (occurrence: None)
  Receive Date: 20060525
  Receipt Date: 20060517
  Transmission Date: 20061013
  Serious: Yes (Other)
  Sender: FDA-Public Use
  Company Number: GB-GLAXOSMITHKLINE-B0424092A

PATIENT
  Age: 65 Year
  Sex: Female

DRUGS (6)
  1. AVANDAMET [Suspect]
     Indication: DIABETES MELLITUS
     Route: 048
     Dates: end: 20060404
  2. METFORMIN [Concomitant]
     Dosage: 500MG THREE TIMES PER DAY
     Route: 048
  3. SIMVASTATIN [Concomitant]
     Dosage: 10MG AT NIGHT
     Route: 048
  4. PERINDOPRIL [Concomitant]
     Dosage: 4MG TWICE PER DAY
     Route: 048
  5. ASPIRIN [Concomitant]
     Dosage: 75MG PER DAY
     Route: 048
  6. FRUSEMIDE [Concomitant]
     Dosage: 40MG IN THE MORNING
     Route: 048

REACTIONS (1)
  - DEPRESSED MOOD [None]
